FAERS Safety Report 7475790-4 (Version None)
Quarter: 2011Q1

REPORT INFORMATION
  Report Type: 
  Country: None (occurrence: None)
  Receive Date: 20110308
  Receipt Date: 20101116
  Transmission Date: 20110831
  Serious: Yes (Hospitalization)
  Sender: FDA-Public Use
  Company Number: 2010PROUSA00117

PATIENT
  Age: 67 Year
  Sex: Male
  Weight: 56.6 kg

DRUGS (13)
  1. VESICARE [Concomitant]
  2. DILTIAZEM HCL [Concomitant]
  3. COUMADIN [Concomitant]
  4. LUPRON [Concomitant]
  5. CASODEX [Concomitant]
  6. JANTOVEN [Concomitant]
  7. PROVENGE [Suspect]
  8. MULTIVITAMINS, OTHER COMBINATIONS [Concomitant]
  9. TUMS (CALCIUM CARBONATE) [Concomitant]
  10. PROVENGE [Suspect]
     Indication: PROSTATE CANCER METASTATIC
     Dosage: 250 ML, SINGLE, INTRAVENOUS
     Route: 042
     Dates: start: 20101015, end: 20101015
  11. PROVENGE [Suspect]
  12. TIGER BALM (CAMPHOR, EUCALYPTUS GLOBULUS OIL, MENTHOL, SYZYGIUM AROMAT [Concomitant]
  13. FLECAINIDE ACETATE [Concomitant]

REACTIONS (6)
  - CHILLS [None]
  - PROSTATE CANCER METASTATIC [None]
  - DEVICE RELATED INFECTION [None]
  - TREMOR [None]
  - PYREXIA [None]
  - MUSCULOSKELETAL PAIN [None]
